FAERS Safety Report 24927789 (Version 1)
Quarter: 2025Q1

REPORT INFORMATION
  Report Type: Spontaneous
  Country: US (occurrence: US)
  Receive Date: 20250205
  Receipt Date: 20250205
  Transmission Date: 20250409
  Serious: No
  Sender: Kenvue
  Company Number: US-KENVUE-20250103299

PATIENT

DRUGS (1)
  1. ROGAINE [Suspect]
     Active Substance: MINOXIDIL
     Indication: Product used for unknown indication
     Route: 065

REACTIONS (5)
  - Obesity [Not Recovered/Not Resolved]
  - Acrochordon [Unknown]
  - Dark circles under eyes [Unknown]
  - Liver disorder [Unknown]
  - Application site dryness [Unknown]
